FAERS Safety Report 25887230 (Version 1)
Quarter: 2025Q4

REPORT INFORMATION
  Report Type: Spontaneous
  Country: US (occurrence: US)
  Receive Date: 20251006
  Receipt Date: 20251006
  Transmission Date: 20260118
  Serious: No
  Sender: MILLICENT HOLDINGS
  Company Number: US-Millicent Holdings Ltd.-MILL20250295

PATIENT
  Sex: Female

DRUGS (2)
  1. INTRAROSA [Suspect]
     Active Substance: PRASTERONE
     Indication: Menopause
     Dosage: UNKNOWN
     Route: 067
     Dates: start: 202509
  2. INTRAROSA [Suspect]
     Active Substance: PRASTERONE
     Indication: Menopausal symptoms
     Route: 067

REACTIONS (3)
  - Off label use [Unknown]
  - Product colour issue [Unknown]
  - Product dose omission issue [Unknown]
